FAERS Safety Report 4323040-X (Version None)
Quarter: 2004Q1

REPORT INFORMATION
  Report Type: 
  Country: None (occurrence: None)
  Receive Date: 20040322
  Receipt Date: 20040304
  Transmission Date: 20041129
  Serious: Yes (Hospitalization)
  Sender: FDA-Public Use
  Company Number: 193815

PATIENT
  Sex: Female

DRUGS (1)
  1. AVONEX [Suspect]
     Indication: MULTIPLE SCLEROSIS
     Dates: start: 19990101

REACTIONS (5)
  - BALANCE DISORDER [None]
  - FALL [None]
  - JOINT SPRAIN [None]
  - SENSATION OF HEAVINESS [None]
  - SPINAL FRACTURE [None]
